FAERS Safety Report 23663293 (Version 4)
Quarter: 2024Q2

REPORT INFORMATION
  Report Type: Spontaneous
  Country: US (occurrence: US)
  Receive Date: 20240322
  Receipt Date: 20240521
  Transmission Date: 20240716
  Serious: Yes (Hospitalization, Disabling)
  Sender: FDA-Public Use
  Company Number: US-AMGEN-USASP2024059351

PATIENT
  Sex: Female

DRUGS (3)
  1. REPATHA [Suspect]
     Active Substance: EVOLOCUMAB
     Indication: Blood cholesterol increased
     Dosage: UNK
     Route: 065
  2. REPATHA [Suspect]
     Active Substance: EVOLOCUMAB
     Indication: Cardiac disorder
  3. ENTRESTO [Concomitant]
     Active Substance: SACUBITRIL\VALSARTAN
     Dosage: UNK

REACTIONS (8)
  - Road traffic accident [Recovering/Resolving]
  - Upper limb fracture [Recovering/Resolving]
  - Hip fracture [Recovering/Resolving]
  - Back injury [Recovering/Resolving]
  - Injection site pain [Recovering/Resolving]
  - Injection site bruising [Recovering/Resolving]
  - Drug dose omission by device [Unknown]
  - Device difficult to use [Unknown]
